FAERS Safety Report 6334039-6 (Version None)
Quarter: 2009Q3

REPORT INFORMATION
  Report Type: 
  Country: None (occurrence: None)
  Receive Date: 20090829
  Receipt Date: 20090824
  Transmission Date: 20100115
  Serious: Yes (Hospitalization, Other)
  Sender: FDA-Public Use
  Company Number: US-ELI_LILLY_AND_COMPANY-US200908005587

PATIENT
  Sex: Male

DRUGS (2)
  1. HUMALOG [Suspect]
     Dosage: UNK, UNK
     Dates: start: 20090501
  2. HUMALOG [Suspect]
     Dates: start: 19990101, end: 20090501

REACTIONS (8)
  - ANURIA [None]
  - ASTHENIA [None]
  - BLOOD GLUCOSE DECREASED [None]
  - BLOOD GLUCOSE INCREASED [None]
  - JOINT INJURY [None]
  - RENAL FAILURE [None]
  - SKIN ULCER [None]
  - VISION BLURRED [None]
